FAERS Safety Report 10967295 (Version 1)
Quarter: 2015Q1

REPORT INFORMATION
  Report Type: Spontaneous
  Country: FR (occurrence: FR)
  Receive Date: 20150330
  Receipt Date: 20150330
  Transmission Date: 20150721
  Serious: Yes (Hospitalization)
  Sender: FDA-Public Use
  Company Number: FR-PFIZER INC-2015103569

PATIENT
  Age: 57 Year
  Sex: Female

DRUGS (7)
  1. CELLCEPT [Suspect]
     Active Substance: MYCOPHENOLATE MOFETIL\MYCOPHENOLATE MOFETIL HYDROCHLORIDE
     Dosage: 2 G, DAILY
     Route: 042
     Dates: start: 20141125, end: 20141201
  2. IMIPENEM AND CILASTATIN [Suspect]
     Active Substance: CILASTATIN SODIUM\IMIPENEM
     Indication: ANTIBIOTIC THERAPY
     Dosage: 500 MG, 4X/DAY
     Route: 042
     Dates: start: 20141031, end: 20141124
  3. VFEND [Suspect]
     Active Substance: VORICONAZOLE
     Dosage: 500 MG, 1X/DAY
     Route: 048
     Dates: start: 20141104, end: 20141123
  4. ZELITREX [Suspect]
     Active Substance: VALACYCLOVIR HYDROCHLORIDE
     Indication: ANTIVIRAL PROPHYLAXIS
     Dosage: 1 G, 1X/DAY
     Route: 048
     Dates: start: 20140908, end: 20141123
  5. CELLCEPT [Suspect]
     Active Substance: MYCOPHENOLATE MOFETIL\MYCOPHENOLATE MOFETIL HYDROCHLORIDE
     Indication: PROPHYLAXIS AGAINST TRANSPLANT REJECTION
     Dosage: 1 G, 1X/DAY
     Route: 048
     Dates: start: 20140912
  6. GLIVEC [Concomitant]
     Active Substance: IMATINIB MESYLATE
  7. NEORAL [Suspect]
     Active Substance: CYCLOSPORINE
     Indication: PROPHYLAXIS AGAINST TRANSPLANT REJECTION
     Dosage: 350 MG, 1X/DAY
     Route: 048
     Dates: start: 20140912, end: 20141123

REACTIONS (3)
  - Toxic encephalopathy [Recovered/Resolved]
  - Acute kidney injury [Recovered/Resolved]
  - Myoclonus [Recovered/Resolved]

NARRATIVE: CASE EVENT DATE: 20141123
